FAERS Safety Report 7290698-5 (Version None)
Quarter: 2011Q1

REPORT INFORMATION
  Report Type: 
  Country: None (occurrence: None)
  Receive Date: 20110214
  Receipt Date: 20110204
  Transmission Date: 20110831
  Serious: Yes (Death)
  Sender: FDA-Public Use
  Company Number: ES-ROCHE-738989

PATIENT
  Sex: Female
  Weight: 72 kg

DRUGS (2)
  1. AVASTIN [Suspect]
     Indication: BREAST CANCER
     Dosage: FREQUENCY REPORTED: FORTNIGHTLY.
     Route: 042
     Dates: start: 20100628, end: 20100906
  2. DOCETAXEL [Concomitant]
     Indication: BREAST CANCER
     Route: 042
     Dates: start: 20100628, end: 20100906

REACTIONS (1)
  - NEOPLASM PROGRESSION [None]
